FAERS Safety Report 24234444 (Version 1)
Quarter: 2024Q3

REPORT INFORMATION
  Report Type: Spontaneous
  Country: JP (occurrence: JP)
  Receive Date: 20240821
  Receipt Date: 20240821
  Transmission Date: 20241017
  Serious: Yes (Hospitalization, Other)
  Sender: TAKEDA
  Company Number: JP-TAKEDA-2024TUS084066

PATIENT
  Age: 64 Year
  Sex: Female
  Weight: 45.7 kg

DRUGS (1)
  1. ALOGLIPTIN [Suspect]
     Active Substance: ALOGLIPTIN
     Indication: Type 2 diabetes mellitus
     Dosage: UNK
     Route: 065

REACTIONS (1)
  - Renal failure [Unknown]
